FAERS Safety Report 9503351 (Version 1)
Quarter: 2013Q1

REPORT INFORMATION
  Report Type: Spontaneous
  Country: US (occurrence: None)
  Receive Date: 20130225
  Receipt Date: 20130225
  Transmission Date: 20140127
  Serious: No
  Sender: FDA-Public Use
  Company Number: 365242

PATIENT
  Sex: Female

DRUGS (3)
  1. VICTOZA [Suspect]
     Indication: TYPE 2 DIABETES MELLITUS
     Dosage: , SUBCUTANEOUS
     Route: 058
  2. NOVOLOG MIX 70/30 (INSULIN ASPART) SUSPENSION [Concomitant]
  3. LANTUS (INSULIN GLARGINE) [Concomitant]

REACTIONS (1)
  - Blood glucose increased [None]
